FAERS Safety Report 9893821 (Version 2)
Quarter: 2014Q2

REPORT INFORMATION
  Report Type: Spontaneous
  Country: US (occurrence: US)
  Receive Date: 20140213
  Receipt Date: 20140506
  Transmission Date: 20141212
  Serious: Yes (Hospitalization, Other)
  Sender: FDA-Public Use
  Company Number: US-B.I. PHARMACEUTICALS,INC./RIDGEFIELD-2014-BI-05396BP

PATIENT
  Age: 77 Year
  Sex: Female
  Weight: 73.6 kg

DRUGS (6)
  1. COMBIVENT [Suspect]
     Indication: ASTHMA
     Route: 055
     Dates: start: 20140201
  2. TOPROL [Concomitant]
     Indication: HYPERTENSION
     Dosage: 30 MG
     Route: 048
  3. EXJADE [Concomitant]
     Indication: CHEMOTHERAPY
     Dosage: 1500 MG
     Route: 048
  4. JAKAFI [Concomitant]
     Indication: CHEMOTHERAPY
     Dosage: 15 MG
     Route: 048
  5. LORATADINE [Concomitant]
     Route: 048
  6. FOLIC ACID [Concomitant]
     Route: 048

REACTIONS (10)
  - Febrile neutropenia [Recovered/Resolved]
  - Fall [Recovered/Resolved]
  - Pneumonia [Not Recovered/Not Resolved]
  - Dyspnoea [Not Recovered/Not Resolved]
  - Supraventricular tachycardia [Recovered/Resolved]
  - Asthenia [Recovered/Resolved]
  - Myalgia [Recovered/Resolved]
  - Pancytopenia [Unknown]
  - Off label use [Unknown]
  - Product quality issue [Recovered/Resolved]
